FAERS Safety Report 4358606-4 (Version None)
Quarter: 2004Q2

REPORT INFORMATION
  Report Type: 
  Country: None (occurrence: None)
  Receive Date: 20040514
  Receipt Date: 20040427
  Transmission Date: 20050107
  Serious: Yes (Hospitalization)
  Sender: FDA-Public Use
  Company Number: 2004-115534-NL

PATIENT
  Age: 48 Year
  Sex: Male

DRUGS (1)
  1. TICE BCG [Suspect]
     Indication: TRANSITIONAL CELL CARCINOMA
     Dosage: CFU INTRAVESICAL
     Route: 043
     Dates: start: 20040323, end: 20040420

REACTIONS (1)
  - ENDOCARDITIS [None]
